FAERS Safety Report 17298338 (Version 1)
Quarter: 2020Q1

REPORT INFORMATION
  Report Type: Report from Study
  Country: US (occurrence: US)
  Receive Date: 20200121
  Receipt Date: 20200121
  Transmission Date: 20200409
  Serious: Yes (Other)
  Sender: FDA-Public Use
  Company Number: US-TAIHO ONCOLOGY  INC-EU-2020-00103

PATIENT
  Sex: Female

DRUGS (1)
  1. LONSURF [Suspect]
     Active Substance: TIPIRACIL HYDROCHLORIDE\TRIFLURIDINE
     Indication: PRODUCT USED FOR UNKNOWN INDICATION
     Dosage: CURRENT CYCLE, DOSE UNKNOWN
     Route: 048

REACTIONS (5)
  - Back pain [Unknown]
  - Intentional dose omission [Unknown]
  - Hepatic neoplasm [Unknown]
  - Biliary colic [Unknown]
  - Gallbladder disorder [Unknown]
